FAERS Safety Report 6933275-5 (Version None)
Quarter: 2010Q3

REPORT INFORMATION
  Report Type: 
  Country: None (occurrence: None)
  Receive Date: 20100820
  Receipt Date: 20100816
  Transmission Date: 20110219
  Serious: Yes (Other)
  Sender: FDA-Public Use
  Company Number: GB-SP-2010-04416

PATIENT
  Age: 70 Year
  Sex: Female

DRUGS (1)
  1. IMMUCYST [Suspect]
     Indication: BLADDER TRANSITIONAL CELL CARCINOMA
     Route: 043

REACTIONS (8)
  - COLOUR BLINDNESS [None]
  - HLA MARKER STUDY POSITIVE [None]
  - OPTIC NEURITIS [None]
  - PAPILLOEDEMA [None]
  - RETINOSCHISIS [None]
  - UVEITIS [None]
  - VITREOUS DETACHMENT [None]
  - VITRITIS [None]
